FAERS Safety Report 9213282 (Version 2)
Quarter: 2013Q2

REPORT INFORMATION
  Report Type: Report from Study
  Country: FR (occurrence: FR)
  Receive Date: 20130405
  Receipt Date: 20130419
  Transmission Date: 20140414
  Serious: Yes (Hospitalization)
  Sender: FDA-Public Use
  Company Number: PHHO2013FR004720

PATIENT
  Sex: 0

DRUGS (12)
  1. ZOLEDRONATE [Suspect]
     Indication: BREAST CANCER
     Dosage: 4 MG, UNK
     Route: 042
     Dates: start: 20130305, end: 20130305
  2. CYCLOPHOSPHAMIDE [Suspect]
     Dosage: 1000 MG, UNK
     Route: 042
     Dates: start: 20130305, end: 20130305
  3. INNOHEP [Suspect]
     Dosage: 0.9 ML, UNK
     Route: 058
     Dates: end: 20130319
  4. LIPANTHYL [Suspect]
     Dosage: 16 MG, UNK
     Route: 048
     Dates: end: 20130319
  5. TOPALGIC//TRAMADOL HYDROCHLORIDE [Suspect]
     Dosage: 100 MG, UNK
     Route: 048
     Dates: end: 20130319
  6. FLUDEX [Concomitant]
     Dosage: 1.5 MG, QD
     Route: 048
     Dates: end: 20130319
  7. ATARAX                                  /CAN/ [Concomitant]
     Dosage: 25 MG, QD
     Route: 048
     Dates: end: 20130318
  8. IXEL [Concomitant]
     Dosage: 50 MG, BID
     Route: 048
     Dates: end: 20130319
  9. DIFFU K [Concomitant]
     Dosage: UNK
     Route: 048
     Dates: end: 20130319
  10. PYOSTACINE [Concomitant]
     Dosage: 100 MG, QD (FOR 15 DAYS)
     Route: 048
     Dates: end: 20130319
  11. VOGALENE [Concomitant]
  12. LEVOTHYROX [Concomitant]
     Dosage: 75 MG, QD

REACTIONS (1)
  - Duodenal ulcer [Not Recovered/Not Resolved]
